FAERS Safety Report 24294145 (Version 1)
Quarter: 2024Q3

REPORT INFORMATION
  Report Type: Spontaneous
  Country: US (occurrence: None)
  Receive Date: 20240906
  Receipt Date: 20240906
  Transmission Date: 20241017
  Serious: No
  Sender: DOMPE FARMACEUTICI
  Company Number: US-FARMAPROD-202405-1803

PATIENT
  Age: 74 Year
  Sex: Female

DRUGS (10)
  1. OXERVATE [Suspect]
     Active Substance: CENEGERMIN-BKBJ
     Indication: Neurotrophic keratopathy
     Route: 047
     Dates: start: 20240430
  2. OXERVATE [Suspect]
     Active Substance: CENEGERMIN-BKBJ
  3. HYDROXYCHLOROQUINE SULFATE [Concomitant]
     Active Substance: HYDROXYCHLOROQUINE SULFATE
  4. TRELEGY ELLIPTA [Concomitant]
     Active Substance: FLUTICASONE FUROATE\UMECLIDINIUM BROMIDE\VILANTEROL TRIFENATATE
     Dosage: 100-62.5 BLISTER, WITH INHALATION DEVICE
  5. OCUVITE EYE PLUS MULTI [Concomitant]
  6. OMEPRAZOLE [Concomitant]
     Active Substance: OMEPRAZOLE
  7. FAMOTIDINE [Concomitant]
     Active Substance: FAMOTIDINE
  8. SYSTANE (HYPROMELLOSE 2910 (4000 MPA.S)) [Concomitant]
     Active Substance: HYPROMELLOSE 2910 (4000 MPA.S)
     Dosage: 0.3 %-0.4%
  9. AMLODIPINE BESYLATE [Concomitant]
     Active Substance: AMLODIPINE BESYLATE
  10. OLMESARTAN MEDOXOMIL [Concomitant]
     Active Substance: OLMESARTAN MEDOXOMIL
     Dosage: DAILY

REACTIONS (4)
  - Eye pain [Not Recovered/Not Resolved]
  - Wrong technique in product usage process [Not Recovered/Not Resolved]
  - Erythema [Unknown]
  - Periorbital pain [Unknown]

NARRATIVE: CASE EVENT DATE: 20240508
